FAERS Safety Report 6334447-3 (Version None)
Quarter: 2009Q3

REPORT INFORMATION
  Report Type: 
  Country: None (occurrence: None)
  Receive Date: 20090831
  Receipt Date: 20071120
  Transmission Date: 20100115
  Serious: Yes (Other)
  Sender: FDA-Public Use
  Company Number: US-ASTRAZENECA-2006UW07880

PATIENT
  Age: 237 Month
  Sex: Female
  Weight: 67.1 kg

DRUGS (8)
  1. SEROQUEL [Suspect]
     Indication: DEPRESSION
     Dosage: 50MG TO 100MG
     Route: 048
     Dates: start: 20040101, end: 20060101
  2. SEROQUEL [Suspect]
     Indication: BIPOLAR DISORDER
     Dosage: 50MG TO 100MG
     Route: 048
     Dates: start: 20040101, end: 20060101
  3. SEROQUEL [Suspect]
     Dosage: 200 MG-300 MG
     Route: 048
     Dates: start: 20050815, end: 20060208
  4. SEROQUEL [Suspect]
     Dosage: 200 MG-300 MG
     Route: 048
     Dates: start: 20050815, end: 20060208
  5. GLIPIZIDE [Concomitant]
     Dates: start: 20050827
  6. LITHIUM CARBONATE [Concomitant]
     Dosage: 900 MG TO 1800 MG
     Dates: start: 20050827
  7. LEXAPRO [Concomitant]
     Dates: start: 20050827
  8. METFORMIN HCL [Concomitant]

REACTIONS (7)
  - BLOOD GLUCOSE INCREASED [None]
  - DIABETES MELLITUS [None]
  - DRUG EXPOSURE DURING PREGNANCY [None]
  - GESTATIONAL DIABETES [None]
  - HABITUAL ABORTION [None]
  - TYPE 1 DIABETES MELLITUS [None]
  - TYPE 2 DIABETES MELLITUS [None]
